FAERS Safety Report 13535089 (Version 2)
Quarter: 2017Q2

REPORT INFORMATION
  Report Type: Report from Study
  Country: US (occurrence: US)
  Receive Date: 20170511
  Receipt Date: 20170516
  Transmission Date: 20170830
  Serious: Yes (Hospitalization, Other)
  Sender: FDA-Public Use
  Company Number: US-ROCHE-1933719

PATIENT
  Sex: Male
  Weight: 44.95 kg

DRUGS (2)
  1. PULMOZYME [Suspect]
     Active Substance: DORNASE ALFA
     Indication: CYSTIC FIBROSIS
     Route: 065
     Dates: end: 2010
  2. PULMOZYME [Suspect]
     Active Substance: DORNASE ALFA
     Route: 065
     Dates: start: 20170427

REACTIONS (4)
  - Pneumonia [Recovering/Resolving]
  - Oxygen saturation decreased [Recovering/Resolving]
  - Staphylococcal infection [Unknown]
  - Lung infection [Recovering/Resolving]
